FAERS Safety Report 9005612 (Version 1)
Quarter: 2013Q1

REPORT INFORMATION
  Report Type: Spontaneous
  Country: US (occurrence: US)
  Receive Date: 20130109
  Receipt Date: 20130109
  Transmission Date: 20140127
  Serious: No
  Sender: FDA-Public Use
  Company Number: US-009507513-1301USA001686

PATIENT
  Age: 22 Year
  Sex: Female

DRUGS (1)
  1. NUVARING [Suspect]
     Indication: CONTRACEPTION
     Dosage: 1 DF, 1 RING UP TO 3 WEEKS WITH ONE WEEK RING FREE BREAK
     Route: 067
     Dates: start: 20121216

REACTIONS (3)
  - Inappropriate schedule of drug administration [Unknown]
  - Device expulsion [Unknown]
  - Unintended pregnancy [Unknown]
